FAERS Safety Report 10540582 (Version 2)
Quarter: 2015Q1

REPORT INFORMATION
  Report Type: Spontaneous
  Country: IT (occurrence: IT)
  Receive Date: 20141024
  Receipt Date: 20150206
  Transmission Date: 20150720
  Serious: Yes (Life-Threatening, Hospitalization)
  Sender: FDA-Public Use
  Company Number: IT-PFIZER INC-2014289926

PATIENT
  Age: 77 Year
  Sex: Male
  Weight: 85 kg

DRUGS (9)
  1. PLAVIX [Interacting]
     Active Substance: CLOPIDOGREL BISULFATE
     Dosage: 1 DF, DAILY
     Route: 048
     Dates: start: 20130605, end: 20140307
  2. ANTRA [Interacting]
     Active Substance: OMEPRAZOLE
     Dosage: 1 DF, DAILY
     Route: 048
     Dates: start: 20120501, end: 20140307
  3. KEPPRA [Concomitant]
     Active Substance: LEVETIRACETAM
     Indication: EPILEPSY
     Dosage: 2 DF, UNK
     Route: 048
     Dates: start: 20120501, end: 20140307
  4. CARDURA [Concomitant]
     Active Substance: DOXAZOSIN MESYLATE
     Indication: HYPERTENSION
     Dosage: 1 DF, UNK
     Route: 048
     Dates: start: 20120501, end: 20140307
  5. NOOTROPIL [Concomitant]
     Active Substance: PIRACETAM
     Dosage: UNK
     Dates: start: 20140101, end: 20140307
  6. BISOPROLOL FUMARATE. [Concomitant]
     Active Substance: BISOPROLOL FUMARATE
     Dosage: 2.5 MG, UNK
     Route: 048
     Dates: start: 20130101, end: 20140307
  7. ATORVASTATIN CALCIUM. [Suspect]
     Active Substance: ATORVASTATIN CALCIUM
     Indication: ARTERIOSCLEROSIS
     Dosage: 40 MG, DAILY
     Route: 048
     Dates: start: 20130101
  8. EFFEXOR [Concomitant]
     Active Substance: VENLAFAXINE HYDROCHLORIDE
     Dosage: 1 DF, UNK
     Route: 048
     Dates: start: 20140101, end: 20140307
  9. NORVASC [Concomitant]
     Active Substance: AMLODIPINE BESYLATE
     Indication: HYPERTENSION
     Dosage: 1 DF, UNK
     Route: 048
     Dates: start: 20120501, end: 20140307

REACTIONS (4)
  - Drug prescribing error [Recovered/Resolved with Sequelae]
  - Drug interaction [Recovered/Resolved with Sequelae]
  - Cerebrovascular accident [Recovered/Resolved with Sequelae]
  - Drug ineffective [Recovered/Resolved with Sequelae]

NARRATIVE: CASE EVENT DATE: 20140306
